FAERS Safety Report 7929571-5 (Version None)
Quarter: 2011Q4

REPORT INFORMATION
  Report Type: 
  Country: None (occurrence: None)
  Receive Date: 20111121
  Receipt Date: 20111110
  Transmission Date: 20120403
  Serious: Yes (Hospitalization)
  Sender: FDA-Public Use
  Company Number: NL-JNJFOC-20111105330

PATIENT
  Sex: Male
  Weight: 36 kg

DRUGS (2)
  1. ANTIBIOTICS [Concomitant]
     Indication: CROHN'S DISEASE
  2. REMICADE [Suspect]
     Indication: CROHN'S DISEASE
     Route: 042
     Dates: start: 20110513

REACTIONS (3)
  - NAUSEA [None]
  - WEIGHT DECREASED [None]
  - ABDOMINAL PAIN [None]
